FAERS Safety Report 15407021 (Version 1)
Quarter: 2018Q3

REPORT INFORMATION
  Report Type: Spontaneous
  Country: US (occurrence: US)
  Receive Date: 20180913
  Receipt Date: 20180913
  Transmission Date: 20181010
  Serious: Yes (Other)
  Sender: FDA-Public Use
  Company Number: None

PATIENT
  Age: 56 Year
  Sex: Female
  Weight: 90.72 kg

DRUGS (1)
  1. ZUBSOLV [Suspect]
     Active Substance: BUPRENORPHINE HYDROCHLORIDE\NALOXONE HYDROCHLORIDE
     Indication: DRUG DEPENDENCE
     Dosage: ?          OTHER DOSE:5.7/1.4MG;OTHER FREQUENCY:3 DAILY;?
     Route: 060
     Dates: start: 20180911

REACTIONS (3)
  - Dysphagia [None]
  - Dyspepsia [None]
  - Decreased appetite [None]

NARRATIVE: CASE EVENT DATE: 20180911
